FAERS Safety Report 8588967-1 (Version None)
Quarter: 2012Q3

REPORT INFORMATION
  Report Type: 
  Country: None (occurrence: None)
  Receive Date: 20120813
  Receipt Date: 20120810
  Transmission Date: 20120928
  Serious: Yes (Death)
  Sender: FDA-Public Use
  Company Number: AU-B.I. PHARMACEUTICALS,INC./RIDGEFIELD-2012-AU-01342AU

PATIENT
  Sex: Male
  Weight: 111 kg

DRUGS (7)
  1. CARVEDILOL [Concomitant]
  2. PRADAXA [Suspect]
     Dosage: 220 MG
  3. LANOXIN [Concomitant]
  4. METFORMIN HCL [Concomitant]
  5. LOPID [Concomitant]
  6. DIAMICRON [Concomitant]
  7. IRBESARTAN + HYDROCHLOROTHIAZIDE [Concomitant]

REACTIONS (1)
  - ARRHYTHMIA [None]
